FAERS Safety Report 18948006 (Version 3)
Quarter: 2021Q3

REPORT INFORMATION
  Report Type: Spontaneous
  Country: US (occurrence: US)
  Receive Date: 20210226
  Receipt Date: 20210719
  Transmission Date: 20211014
  Serious: Yes (Hospitalization)
  Sender: FDA-Public Use
  Company Number: US-VERTEX PHARMACEUTICALS-2021-002914

PATIENT
  Age: 26 Year
  Sex: Female
  Weight: 41 kg

DRUGS (55)
  1. TRIKAFTA [Suspect]
     Active Substance: ELEXACAFTOR\IVACAFTOR\TEZACAFTOR
     Indication: CYSTIC FIBROSIS
     Dosage: ELEXA100MG/TEZA50MG/IVA75MG AND IVA150MG, UNK FREQ
     Route: 048
     Dates: start: 202008, end: 202012
  2. AMOXICILLIN AND CLAVUNATE POTASSIUM [Concomitant]
     Active Substance: AMOXICILLIN\CLAVULANATE POTASSIUM
  3. AZELASTINE. [Concomitant]
     Active Substance: AZELASTINE HYDROCHLORIDE
  4. CARVEDILOL. [Concomitant]
     Active Substance: CARVEDILOL
  5. DOXYCYCLINE HYCLATE. [Concomitant]
     Active Substance: DOXYCYCLINE HYCLATE
  6. LINEZOLID. [Concomitant]
     Active Substance: LINEZOLID
  7. NOVOLIN 10R [Concomitant]
  8. OYSCO 500+D [Concomitant]
  9. SCOPOLAMINE DCI [Concomitant]
  10. SERTRALINE [Concomitant]
     Active Substance: SERTRALINE HYDROCHLORIDE
  11. SODIUM CHLORIDE. [Concomitant]
     Active Substance: SODIUM CHLORIDE
     Route: 055
  12. ZENPEP [Concomitant]
     Active Substance: PANCRELIPASE AMYLASE\PANCRELIPASE LIPASE\PANCRELIPASE PROTEASE
  13. TRIKAFTA [Interacting]
     Active Substance: ELEXACAFTOR\IVACAFTOR\TEZACAFTOR
     Dosage: 2 TABS (50MG ELEXA/25MG TEZA/37.5MG IVA) AM; 1 TAB (75MG IVA) PM
     Route: 048
     Dates: start: 20210710
  14. AMLODIPINE [Concomitant]
     Active Substance: AMLODIPINE BESYLATE
  15. ATOVAQUONE. [Concomitant]
     Active Substance: ATOVAQUONE
  16. VITAMIN D3 [Concomitant]
     Active Substance: CHOLECALCIFEROL
  17. DILTIAZEM. [Concomitant]
     Active Substance: DILTIAZEM
  18. TOBRAMYCIN. [Concomitant]
     Active Substance: TOBRAMYCIN
     Route: 055
  19. VITAMIN D3 [Concomitant]
     Active Substance: CHOLECALCIFEROL
  20. FOLIC ACID. [Concomitant]
     Active Substance: FOLIC ACID
  21. HUMALOG [Concomitant]
     Active Substance: INSULIN LISPRO
  22. MIRTAZAPINE. [Concomitant]
     Active Substance: MIRTAZAPINE
  23. PULMOZYME [Concomitant]
     Active Substance: DORNASE ALFA
  24. PREVYMIS [Concomitant]
     Active Substance: LETERMOVIR
  25. ACYCLOVIR [ACICLOVIR] [Concomitant]
     Active Substance: ACYCLOVIR
  26. CLONAZEPAM. [Concomitant]
     Active Substance: CLONAZEPAM
  27. CLONIDINE. [Concomitant]
     Active Substance: CLONIDINE
  28. LANTUS [Concomitant]
     Active Substance: INSULIN GLARGINE
  29. MELATONIN [Concomitant]
     Active Substance: MELATONIN
  30. NOVOLOG [Concomitant]
     Active Substance: INSULIN ASPART
  31. SALINE NASAL SPRAY [Concomitant]
     Active Substance: SODIUM CHLORIDE
     Route: 045
  32. URSODIOL. [Concomitant]
     Active Substance: URSODIOL
  33. ARIKAYCE [Concomitant]
     Active Substance: AMIKACIN
     Dosage: 590 MG
  34. ABILIFY [Concomitant]
     Active Substance: ARIPIPRAZOLE
  35. ADVAIR HFA [Concomitant]
     Active Substance: FLUTICASONE PROPIONATE\SALMETEROL XINAFOATE
  36. AIMOVIG [Concomitant]
     Active Substance: ERENUMAB-AOOE
  37. BRIVIACT [Concomitant]
     Active Substance: BRIVARACETAM
  38. GABAPENTIN. [Concomitant]
     Active Substance: GABAPENTIN
  39. HEPARIN SODIUM. [Concomitant]
     Active Substance: HEPARIN SODIUM
  40. MYCOPHENOLATE [Concomitant]
     Active Substance: MYCOPHENOLIC ACID
  41. NOXAFIL [Concomitant]
     Active Substance: POSACONAZOLE
  42. POSACONAZOLE [Concomitant]
     Active Substance: POSACONAZOLE
  43. PREDNISONE. [Concomitant]
     Active Substance: PREDNISONE
  44. SMZ?TMP DS [Concomitant]
     Active Substance: SULFAMETHOXAZOLE\TRIMETHOPRIM
  45. ALBUTEROL [SALBUTAMOL] [Concomitant]
     Active Substance: ALBUTEROL
     Route: 055
  46. TACROLIMUS. [Concomitant]
     Active Substance: TACROLIMUS
  47. VELTASSA [Concomitant]
     Active Substance: PATIROMER
  48. ALENDRONATE [Concomitant]
     Active Substance: ALENDRONATE SODIUM
  49. FLUTICASONE. [Concomitant]
     Active Substance: FLUTICASONE
  50. HYDRALAZINE [Concomitant]
     Active Substance: HYDRALAZINE HYDROCHLORIDE
  51. LOKELMA [Concomitant]
     Active Substance: SODIUM ZIRCONIUM CYCLOSILICATE
  52. OMEPRAZOLE. [Concomitant]
     Active Substance: OMEPRAZOLE
  53. ONDANSETRON [Concomitant]
     Active Substance: ONDANSETRON
  54. ACETYLCYSTEIN [Concomitant]
     Active Substance: ACETYLCYSTEINE
  55. MAGNESIUM OXIDE. [Concomitant]
     Active Substance: MAGNESIUM OXIDE

REACTIONS (9)
  - Nausea [Not Recovered/Not Resolved]
  - Weight decreased [Unknown]
  - Emergency care examination [Unknown]
  - Vomiting [Not Recovered/Not Resolved]
  - COVID-19 [Unknown]
  - Hospitalisation [Unknown]
  - Drug ineffective [Unknown]
  - Abdominal pain upper [Not Recovered/Not Resolved]
  - Dyspnoea [Not Recovered/Not Resolved]

NARRATIVE: CASE EVENT DATE: 202101
